FAERS Safety Report 7701837-3 (Version None)
Quarter: 2011Q3

REPORT INFORMATION
  Report Type: 
  Country: None (occurrence: None)
  Receive Date: 20110822
  Receipt Date: 20110812
  Transmission Date: 20111222
  Serious: Yes (Other)
  Sender: FDA-Public Use
  Company Number: US-BAYER-2011-045377

PATIENT
  Age: 24 Year
  Sex: Female
  Weight: 99.32 kg

DRUGS (1)
  1. MIRENA [Suspect]
     Indication: CONTRACEPTION
     Dosage: 20 ?G, CONT
     Route: 015
     Dates: start: 20060101

REACTIONS (2)
  - COMPLICATION OF DEVICE REMOVAL [None]
  - UTERINE CERVIX STENOSIS [None]
